FAERS Safety Report 25919221 (Version 1)
Quarter: 2025Q4

REPORT INFORMATION
  Report Type: Spontaneous
  Country: US (occurrence: None)
  Receive Date: 20251013
  Receipt Date: 20251013
  Transmission Date: 20260117
  Serious: Yes (Death)
  Sender: FDA-CTU
  Company Number: None

PATIENT
  Sex: Male

DRUGS (5)
  1. VYNDAMAX [Suspect]
     Active Substance: TAFAMIDIS
     Indication: Acquired ATTR amyloidosis
     Dosage: FREQUENCY : DAILY;?
     Route: 048
     Dates: start: 20250208
  2. ASPIRIN [Concomitant]
     Active Substance: ASPIRIN
  3. CALCIUM TAB 600MG [Concomitant]
  4. OMEGA-3 CAP 1000MG [Concomitant]
  5. VITAMIN A POW [Concomitant]

REACTIONS (1)
  - Death [None]
